FAERS Safety Report 5263510-3 (Version None)
Quarter: 2007Q1

REPORT INFORMATION
  Report Type: 
  Country: None (occurrence: None)
  Receive Date: 20070313
  Receipt Date: 20070307
  Transmission Date: 20070707
  Serious: Yes (Death, Other)
  Sender: FDA-Public Use
  Company Number: 2007UW04287

PATIENT

DRUGS (1)
  1. MERREM [Suspect]
     Route: 042

REACTIONS (2)
  - DEATH [None]
  - PATHOGEN RESISTANCE [None]
